FAERS Safety Report 4713532-3 (Version None)
Quarter: 2005Q3

REPORT INFORMATION
  Report Type: 
  Country: None (occurrence: None)
  Receive Date: 20050711
  Receipt Date: 20050629
  Transmission Date: 20060218
  Serious: Yes (Hospitalization, Congenital Anomaly)
  Sender: FDA-Public Use
  Company Number: 033-1343-M0100078

PATIENT
  Sex: Male
  Weight: 2.8 kg

DRUGS (10)
  1. VIRACEPT [Suspect]
     Indication: HIV INFECTION
     Dosage: 2500 MG (BID), ORAL
     Route: 048
  2. ZIDOVUDINE [Suspect]
     Indication: HIV INFECTION
     Dosage: 24 MG (BID), ORAL; SEE IMAGE
     Route: 048
     Dates: start: 20001107, end: 20001107
  3. AMPRENAVIR (AMPRENAVIR) [Suspect]
     Indication: HIV INFECTION
     Dosage: PLACENTAL
     Route: 064
  4. LAMIVUDINE [Suspect]
     Indication: HIV INFECTION
     Dosage: PLACENTAL
     Route: 064
  5. DIDANOSINE [Suspect]
     Indication: HIV INFECTION
     Dosage: PLACENTAL
     Route: 064
  6. STAVUDINE [Suspect]
     Indication: HIV INFECTION
     Dosage: PLACENTAL
     Route: 064
  7. CLAVULIN (CLAVULANATE POTASSIUM, AMOXICILLIN TRIHYDRATE) [Concomitant]
  8. CODEINE PHOSPHATE AND ACETAMINOPHEN [Concomitant]
  9. PREDNISONE [Concomitant]
  10. AMITRIPTYLINE HYDROCHLORIDE [Concomitant]

REACTIONS (13)
  - ANAEMIA NEONATAL [None]
  - BLOOD CREATININE INCREASED [None]
  - BLOOD UREA INCREASED [None]
  - DRUG EXPOSURE DURING PREGNANCY [None]
  - FOETAL DISTRESS SYNDROME [None]
  - FORCEPS DELIVERY [None]
  - HEAD DEFORMITY [None]
  - HYPERTRIGLYCERIDAEMIA [None]
  - MACROCYTOSIS [None]
  - NEUTROPENIA [None]
  - PLATELET COUNT INCREASED [None]
  - PROCEDURAL COMPLICATION [None]
  - SKULL MALFORMATION [None]
